FAERS Safety Report 4585884-9 (Version None)
Quarter: 2005Q1

REPORT INFORMATION
  Report Type: 
  Country: None (occurrence: None)
  Receive Date: 20050217
  Receipt Date: 20050207
  Transmission Date: 20050727
  Serious: Yes (Hospitalization)
  Sender: FDA-Public Use
  Company Number: FR-GLAXOSMITHKLINE-B0370829A

PATIENT
  Age: 46 Year
  Sex: Female

DRUGS (5)
  1. AUGMENTIN '125' [Suspect]
     Indication: URINARY TRACT INFECTION
     Route: 048
     Dates: start: 20041228, end: 20050110
  2. FUROSEMIDE [Suspect]
     Dosage: 10MG PER DAY
     Route: 048
     Dates: end: 20050101
  3. DEPAKENE [Suspect]
     Dosage: 1250MG PER DAY
     Route: 048
  4. ALEPSAL [Suspect]
     Route: 048
  5. ROACCUTANE [Suspect]
     Dosage: 20MG TWICE PER DAY
     Route: 048

REACTIONS (11)
  - BARBITURATES POSITIVE [None]
  - INJURY [None]
  - LUNG DISORDER [None]
  - MELAENA [None]
  - PANCYTOPENIA [None]
  - RECTAL HAEMORRHAGE [None]
  - RECTAL ULCER [None]
  - SEPTIC SHOCK [None]
  - SHOCK [None]
  - SHOCK HAEMORRHAGIC [None]
  - SOMNOLENCE [None]
